FAERS Safety Report 9557889 (Version 1)
Quarter: 2013Q3

REPORT INFORMATION
  Report Type: Spontaneous
  Country: US (occurrence: US)
  Receive Date: 20130926
  Receipt Date: 20130926
  Transmission Date: 20140515
  Serious: Yes (Disabling)
  Sender: FDA-Public Use
  Company Number: US-BAYER-2013-115505

PATIENT
  Age: 56 Year
  Sex: Female

DRUGS (1)
  1. CIPRO [Suspect]
     Indication: DIVERTICULITIS

REACTIONS (1)
  - Tendon disorder [None]
